FAERS Safety Report 8580829 (Version 3)
Quarter: 2012Q4

REPORT INFORMATION
  Report Type: 
  Country: US (occurrence: US)
  Receive Date: 20120525
  Receipt Date: 20121119
  Transmission Date: 20130627
  Serious: Yes (Disabling)
  Sender: FDA-Public Use
  Company Number: US-B.I. PHARMACEUTICALS,INC./RIDGEFIELD-2012-BP-11124BP

PATIENT
  Age: 81 Year
  Sex: Female
  Weight: 64 kg

DRUGS (12)
  1. PRADAXA [Suspect]
     Indication: CEREBROVASCULAR ACCIDENT PROPHYLAXIS
     Dosage: 150 mg
     Route: 048
     Dates: start: 20120424, end: 20120507
  2. PRADAXA [Suspect]
     Indication: ATRIAL FIBRILLATION
  3. AMIODARONE [Concomitant]
  4. FOSOMAX [Concomitant]
     Indication: OSTEOPOROSIS
  5. LISINO/HCTZ [Concomitant]
     Indication: HYPERTENSION
  6. METFORMIN [Concomitant]
  7. METOPROLOL [Concomitant]
     Dosage: 50 mg
  8. PROVENTIL [Concomitant]
  9. SIMVASTATIN [Concomitant]
     Indication: BLOOD CHOLESTEROL INCREASED
     Dosage: 40 mg
  10. SYNTHROID [Concomitant]
  11. COREG [Concomitant]
     Dosage: 6.25 mg
  12. XARELTO [Concomitant]
     Dosage: 20 mg

REACTIONS (4)
  - Gait disturbance [Recovered/Resolved]
  - Dizziness [Recovered/Resolved]
  - Asthenia [Recovered/Resolved]
  - Lung disorder [Recovered/Resolved]
